FAERS Safety Report 8089499-X (Version None)
Quarter: 2012Q1

REPORT INFORMATION
  Report Type: 
  Country: None (occurrence: None)
  Receive Date: 20120128
  Receipt Date: 20110628
  Transmission Date: 20120608
  Serious: No
  Sender: FDA-Public Use
  Company Number: US-ABBOTT-11P-163-0835008-00

PATIENT
  Age: 30 Year
  Sex: Male

DRUGS (10)
  1. EFFEXOR [Concomitant]
     Indication: PRODUCT USED FOR UNKNOWN INDICATION
  2. REMERON [Concomitant]
     Indication: PRODUCT USED FOR UNKNOWN INDICATION
     Dosage: AT BEDTIME
  3. TRAMADOL HCL [Concomitant]
     Indication: PRODUCT USED FOR UNKNOWN INDICATION
  4. HUMIRA [Suspect]
     Indication: CROHN'S DISEASE
     Dosage: 4 INJECTIONS, DAY 1
     Route: 058
     Dates: start: 20100101
  5. HUMIRA [Suspect]
     Dosage: 1INJECTION, EVERY 2 WEEKS
     Route: 058
  6. XANAX [Concomitant]
     Indication: PRODUCT USED FOR UNKNOWN INDICATION
  7. HUMIRA [Suspect]
     Dates: start: 20110616
  8. HUMIRA [Suspect]
     Dosage: 2 INJECTIONS, DAY 15
     Route: 058
  9. NEURONTIN [Concomitant]
     Indication: PRODUCT USED FOR UNKNOWN INDICATION
  10. NORCO [Concomitant]
     Indication: PAIN
     Dosage: 1-/325, EVERY 6 HOURS

REACTIONS (2)
  - INJECTION SITE PAIN [None]
  - INFECTION [None]
